FAERS Safety Report 9106845 (Version 1)
Quarter: 2013Q1

REPORT INFORMATION
  Report Type: Spontaneous
  Country: TW (occurrence: TW)
  Receive Date: 20130221
  Receipt Date: 20130221
  Transmission Date: 20140127
  Serious: Yes (Death, Hospitalization)
  Sender: FDA-Public Use
  Company Number: PHHY2013TW016720

PATIENT
  Age: 86 Year
  Sex: Male

DRUGS (12)
  1. CLONAZEPAM [Suspect]
     Indication: TREMOR
     Dosage: 0.5 MG, BID
     Route: 048
  2. ESCITALOPRAM [Concomitant]
     Dosage: 10 MG, QD
     Route: 048
  3. RISPERIDONE [Concomitant]
     Dosage: 1 MG, QD
     Route: 048
  4. DIPYRIDAMOLE [Concomitant]
     Dosage: 25 MG, BID
     Route: 048
  5. FLUNARIZINE [Concomitant]
     Dosage: 5 MG, QD
     Route: 048
  6. PIPERACILLIN/TAZOBACTAM [Concomitant]
  7. TEICOPLANIN [Concomitant]
  8. NORADRENALIN//NOREPINEPHRINE [Concomitant]
  9. DIPHENHYDRAMINE [Concomitant]
     Dosage: 30 MG, QD
     Route: 042
  10. AMIODARONE [Concomitant]
     Dosage: 200 MG, TID
     Route: 048
  11. FUROSEMIDE [Concomitant]
     Dosage: 20 MG, BID
     Route: 042
  12. CEFTAZIDIME [Concomitant]
     Indication: PNEUMONIA
     Dosage: 2 G, Q12H
     Route: 042

REACTIONS (6)
  - Septic shock [Fatal]
  - Dermatitis bullous [Recovering/Resolving]
  - Blister [Recovering/Resolving]
  - Pain of skin [Recovering/Resolving]
  - Nikolsky^s sign [Recovering/Resolving]
  - Toxic epidermal necrolysis [Recovering/Resolving]
